FAERS Safety Report 12317789 (Version 1)
Quarter: 2016Q2

REPORT INFORMATION
  Report Type: Spontaneous
  Country: BR (occurrence: BR)
  Receive Date: 20160429
  Receipt Date: 20160429
  Transmission Date: 20160815
  Serious: Yes (Death, Hospitalization, Other)
  Sender: FDA-Public Use
  Company Number: BR-PFIZER INC-2016225837

PATIENT
  Age: 73 Year
  Sex: Female
  Weight: 62 kg

DRUGS (11)
  1. CAMPTOSAR [Suspect]
     Active Substance: IRINOTECAN HYDROCHLORIDE
     Dosage: UNK
     Dates: start: 20160329
  2. FAULDFLUOR [Suspect]
     Active Substance: FLUOROURACIL
     Indication: PANCREATIC CARCINOMA METASTATIC
     Dosage: 686.4 MG, EVERY 14 DAYS
     Route: 042
     Dates: start: 20130725
  3. TEVAOXALI [Suspect]
     Active Substance: OXALIPLATIN
     Dosage: UNK
     Dates: start: 20160329
  4. FAULDFLUOR [Suspect]
     Active Substance: FLUOROURACIL
     Dosage: UNK
     Dates: start: 20160329
  5. OMEPRAZOLE. [Concomitant]
     Active Substance: OMEPRAZOLE
     Dosage: 40 MG, DAILY (20MG 2 UNITS, 1X/DAY)
  6. CAMPTOSAR [Suspect]
     Active Substance: IRINOTECAN HYDROCHLORIDE
     Indication: PANCREATIC CARCINOMA METASTATIC
     Dosage: 308.88 MG, EVERY 14 DAYS
     Route: 042
     Dates: start: 20130725
  7. LEXOTAN [Concomitant]
     Active Substance: BROMAZEPAM
     Dosage: 3 MG, 1X/DAY
  8. CLEXANE [Concomitant]
     Active Substance: ENOXAPARIN SODIUM
     Dosage: 60 MG, 2X/DAY (2 SYRINGE)
  9. FAULDFLUOR [Suspect]
     Active Substance: FLUOROURACIL
     Dosage: 4118.4 MG, EVERY 14 DAYS (D1 - D3)
     Route: 042
     Dates: start: 20130725
  10. IMOSEC [Concomitant]
     Active Substance: LOPERAMIDE
     Dosage: 2 MG, 1X/DAY
  11. TEVAOXALI [Suspect]
     Active Substance: OXALIPLATIN
     Indication: PANCREATIC CARCINOMA METASTATIC
     Dosage: 145.86 MG, EVERY 14 DAYS
     Route: 042
     Dates: start: 20130725

REACTIONS (7)
  - Sepsis [Fatal]
  - Malnutrition [Unknown]
  - Neutropenia [Unknown]
  - Odynophagia [Unknown]
  - Dehydration [Unknown]
  - Mucosal inflammation [Unknown]
  - Thrombocytopenia [Unknown]

NARRATIVE: CASE EVENT DATE: 201604
